FAERS Safety Report 25184125 (Version 2)
Quarter: 2025Q2

REPORT INFORMATION
  Report Type: Spontaneous
  Country: US (occurrence: US)
  Receive Date: 20250410
  Receipt Date: 20250421
  Transmission Date: 20250717
  Serious: Yes (Other)
  Sender: PFIZER
  Company Number: US-PFIZER INC-202500074439

PATIENT
  Age: 65 Year
  Sex: Female
  Weight: 79.365 kg

DRUGS (4)
  1. DOXYCYCLINE HYCLATE [Suspect]
     Active Substance: DOXYCYCLINE HYCLATE
     Indication: Sinus disorder
     Dosage: TWO A DAY
     Route: 048
     Dates: start: 20241123
  2. CIPROFLOXACIN [Suspect]
     Active Substance: CIPROFLOXACIN
  3. PREDNISONE [Suspect]
     Active Substance: PREDNISONE
  4. KEFLEX [Suspect]
     Active Substance: CEPHALEXIN

REACTIONS (10)
  - Near death experience [Unknown]
  - Chest pain [Unknown]
  - Dizziness [Unknown]
  - Blood pressure increased [Unknown]
  - Heart rate increased [Unknown]
  - Nightmare [Unknown]
  - Restlessness [Unknown]
  - Insomnia [Unknown]
  - Feeling cold [Unknown]
  - Asthenia [Unknown]

NARRATIVE: CASE EVENT DATE: 20240101
